FAERS Safety Report 10257546 (Version 1)
Quarter: 2014Q2

REPORT INFORMATION
  Report Type: Spontaneous
  Country: US (occurrence: None)
  Receive Date: 20140623
  Receipt Date: 20140623
  Transmission Date: 20141212
  Serious: No
  Sender: FDA-Public Use
  Company Number: None

PATIENT
  Age: 32 Year
  Sex: Female
  Weight: 54.43 kg

DRUGS (6)
  1. LAMOTRIGINE [Suspect]
     Indication: BIPOLAR DISORDER
     Dosage: 30 TAB QHS BEDTIME ORAL
     Route: 048
     Dates: start: 20140510, end: 20140610
  2. ADDERALL XR [Concomitant]
  3. RISPERDAL [Concomitant]
  4. KLONOPIN [Concomitant]
  5. LEVOTHYROXIN [Concomitant]
  6. ORTHOTRICYCLIN [Concomitant]

REACTIONS (4)
  - Product substitution issue [None]
  - Affect lability [None]
  - Anger [None]
  - Aggression [None]
